FAERS Safety Report 4501964-8 (Version None)
Quarter: 2004Q4

REPORT INFORMATION
  Report Type: 
  Country: None (occurrence: None)
  Receive Date: 20041115
  Receipt Date: 20041115
  Transmission Date: 20050328
  Serious: Yes (Life-Threatening, Hospitalization, Disabling)
  Sender: FDA-Public Use
  Company Number: None

PATIENT
  Age: 38 Year
  Sex: Male
  Weight: 76.2043 kg

DRUGS (3)
  1. BEXTRA [Suspect]
     Indication: BACK PAIN
     Dosage: 20 MG QD ORAL
     Route: 048
     Dates: start: 20020722, end: 20020729
  2. OXYCODONE HCL [Concomitant]
  3. PAXIL [Concomitant]

REACTIONS (1)
  - HEPATITIS [None]
